FAERS Safety Report 16019142 (Version 5)
Quarter: 2019Q2

REPORT INFORMATION
  Report Type: Spontaneous
  Country: CZ (occurrence: CZ)
  Receive Date: 20190228
  Receipt Date: 20190405
  Transmission Date: 20190711
  Serious: Yes (Death, Hospitalization)
  Sender: FDA-Public Use
  Company Number: CZ-ABBVIE-19K-217-2684629-00

PATIENT
  Age: 17 Year
  Sex: Male
  Weight: 24 kg

DRUGS (5)
  1. VALORON [Concomitant]
     Indication: PRODUCT USED FOR UNKNOWN INDICATION
     Dosage: 1-0-1
     Route: 048
  2. MODULEN IBD [Concomitant]
     Active Substance: CARBOHYDRATES\FATTY ACIDS\MINERALS\PROTEIN\VITAMINS
     Indication: INFLAMMATORY BOWEL DISEASE
     Dosage: 1,5 L
     Route: 048
  3. LOPERON [Concomitant]
     Indication: DIARRHOEA
     Dosage: 0-0-1
     Route: 048
  4. HUMIRA [Suspect]
     Active Substance: ADALIMUMAB
     Indication: INFLAMMATORY BOWEL DISEASE
  5. HUMIRA [Suspect]
     Active Substance: ADALIMUMAB
     Indication: CROHN^S DISEASE
     Route: 058
     Dates: start: 201402

REACTIONS (4)
  - Cardiac failure [Fatal]
  - Functional gastrointestinal disorder [Fatal]
  - Influenza [Not Recovered/Not Resolved]
  - Embolism [Fatal]

NARRATIVE: CASE EVENT DATE: 20190209
